FAERS Safety Report 10163451 (Version 2)
Quarter: 2014Q2

REPORT INFORMATION
  Report Type: Report from Study
  Country: CA (occurrence: CA)
  Receive Date: 20140509
  Receipt Date: 20140512
  Transmission Date: 20141212
  Serious: Yes (Other)
  Sender: FDA-Public Use
  Company Number: PHHY2014CA055942

PATIENT
  Sex: Female

DRUGS (7)
  1. ACLASTA [Suspect]
     Indication: OSTEOPOROSIS
     Dosage: UNK UKN, UNK
     Route: 042
     Dates: start: 20130424
  2. ACLASTA [Suspect]
     Dosage: UNK UKN, UNK
     Route: 042
     Dates: start: 20140429
  3. CYCLOBENZAPRINE [Concomitant]
     Dosage: UNK UKN, UNK
  4. ELAVIL [Concomitant]
     Dosage: UNK UKN, UNK
  5. PROCET//CETIRIZINE HYDROCHLORIDE [Concomitant]
     Dosage: UNK UKN, UNK
  6. SYNTHROID [Concomitant]
     Dosage: UNK UKN, UNK
  7. GABAPENTIN [Concomitant]
     Dosage: UNK UKN, UNK

REACTIONS (7)
  - Multiple sclerosis relapse [Unknown]
  - Gait disturbance [Unknown]
  - Dysstasia [Unknown]
  - Influenza like illness [Unknown]
  - Pain [Unknown]
  - Fatigue [Unknown]
  - Lethargy [Unknown]
